FAERS Safety Report 8564901-5 (Version None)
Quarter: 2012Q3

REPORT INFORMATION
  Report Type: 
  Country: None (occurrence: None)
  Receive Date: 20120803
  Receipt Date: 20120730
  Transmission Date: 20120928
  Serious: Yes (Hospitalization)
  Sender: FDA-Public Use
  Company Number: US-MYLANLABS-2012S1015537

PATIENT
  Age: 63 Year
  Sex: Female
  Weight: 94.35 kg

DRUGS (3)
  1. ESTRADIOL [Suspect]
     Indication: ASTHENIA
     Route: 048
     Dates: start: 20120601, end: 20120719
  2. LEXAPRO [Concomitant]
     Indication: ANXIETY
  3. BLOOD PRESSURE MEDICATION [Concomitant]
     Indication: BLOOD PRESSURE INCREASED

REACTIONS (3)
  - FATIGUE [None]
  - ABDOMINAL PAIN [None]
  - PULMONARY EMBOLISM [None]
